FAERS Safety Report 5007045-1 (Version None)
Quarter: 2006Q1

REPORT INFORMATION
  Report Type: 
  Country: None (occurrence: None)
  Receive Date: 20060320
  Receipt Date: 20050805
  Transmission Date: 20060701
  Serious: Yes (Other)
  Sender: FDA-Public Use
  Company Number: 2005-08-0402

PATIENT
  Age: 50 Year
  Sex: Male
  Weight: 87.0906 kg

DRUGS (5)
  1. PEG-INTRON [Suspect]
     Indication: HEPATITIS C
     Dosage: 180 MCG QWK SUBCUTANEOUS
     Route: 058
     Dates: start: 20050504, end: 20050803
  2. REBETOL [Suspect]
     Indication: HEPATITIS C
     Dosage: 1200 MCG QD ORAL
     Route: 048
     Dates: start: 20050504, end: 20050803
  3. METHADONE [Concomitant]
  4. IMIPRAMINE [Concomitant]
  5. TEMAZEPAM [Concomitant]

REACTIONS (3)
  - FATIGUE [None]
  - INSOMNIA [None]
  - SUICIDE ATTEMPT [None]
